FAERS Safety Report 4704457-8 (Version None)
Quarter: 2005Q2

REPORT INFORMATION
  Report Type: 
  Country: None (occurrence: None)
  Receive Date: 20050628
  Receipt Date: 20050615
  Transmission Date: 20051028
  Serious: Yes (Other)
  Sender: FDA-Public Use
  Company Number: GBS050617646

PATIENT
  Age: 70 Year
  Sex: Female

DRUGS (2)
  1. XIGRIS [Suspect]
  2. ANTIBIOTICS [Concomitant]

REACTIONS (1)
  - THROMBOCYTOPENIA [None]
